FAERS Safety Report 10273328 (Version 1)
Quarter: 2014Q1

REPORT INFORMATION
  Report Type: Spontaneous
  Country: US (occurrence: None)
  Receive Date: 20140306
  Receipt Date: 20140306
  Transmission Date: 20141002
  Serious: Yes (Hospitalization, Other)
  Sender: FDA-Public Use
  Company Number: 163-21880-13014971

PATIENT
  Age: 67 Year
  Sex: Female
  Weight: 69.9 kg

DRUGS (16)
  1. REVLIMID (LENALIDOMIDE) (CAPSULES) [Suspect]
     Indication: PLASMA CELL MYELOMA
     Route: 048
     Dates: start: 20120620
  2. DEXAMETHASONE (DEXAMETHASONE) [Suspect]
     Indication: PLASMA CELL MYELOMA
  3. ZOLEDRONIC ACID (ZOLEDRONIC ACID) [Concomitant]
  4. SERTRALINE HYDROCHLORIDE (SERTRALINE HYDROCHLORIDE) [Concomitant]
  5. MORPHINE SULFATE (MORPHINE SULFATE) [Concomitant]
  6. HYDROCODONE BITARTRATE (HYDROCODONE BITARTRATE) [Concomitant]
  7. DOCUSATE SODIUM (DOCUSATE SODIUM) [Concomitant]
  8. HEPARIN (HEPARIN) [Concomitant]
  9. PRILOSEC (OMEPRAZOLE) [Concomitant]
  10. ACETAMINOPHEN (PARACETAMOL) [Concomitant]
  11. LOVENOX (HEPARIN-FRACTION, SODIUM SALT) [Concomitant]
  12. ZOFRAN (ONDANSETRON HYDROCHLORIDE) [Concomitant]
  13. PROTONIX [Concomitant]
  14. POTASSIUM CHLORIDE (POTASSIUM CHLORIDE) [Concomitant]
  15. COMBIVENT MDI (COMBIVENT) [Concomitant]
  16. LEVAQUIN (LEVOFLOXACIN) [Concomitant]

REACTIONS (3)
  - Pneumonia [None]
  - Hypoxia [None]
  - Bronchitis [None]
